FAERS Safety Report 5038313-5 (Version None)
Quarter: 2006Q2

REPORT INFORMATION
  Report Type: 
  Country: None (occurrence: None)
  Receive Date: 20060628
  Receipt Date: 20060628
  Transmission Date: 20061013
  Serious: Yes (Other)
  Sender: FDA-Public Use
  Company Number: None

PATIENT
  Age: 39 Year
  Sex: Female

DRUGS (1)
  1. MACROBID [Suspect]
     Dosage: ORAL ;;0;0
     Route: 048
     Dates: start: 20060502, end: 20060515

REACTIONS (2)
  - HEADACHE [None]
  - NAUSEA [None]
